FAERS Safety Report 20386714 (Version 1)
Quarter: 2022Q1

REPORT INFORMATION
  Report Type: Spontaneous
  Country: US (occurrence: US)
  Receive Date: 20220127
  Receipt Date: 20220127
  Transmission Date: 20220423
  Serious: No
  Sender: FDA-Public Use
  Company Number: US-ALLERGAN-2106404US

PATIENT
  Sex: Male

DRUGS (3)
  1. BOTOX [Suspect]
     Active Substance: ONABOTULINUMTOXINA
     Indication: Migraine
     Dosage: 195 UNITS, SINGLE
     Dates: start: 20210111, end: 20210111
  2. BOTOX [Suspect]
     Active Substance: ONABOTULINUMTOXINA
     Dosage: UNK UNITS, SINGLE
     Dates: start: 20210105, end: 20210105
  3. BOTOX [Suspect]
     Active Substance: ONABOTULINUMTOXINA
     Dosage: 200 UNITS, SINGLE
     Dates: start: 20210104, end: 20210104

REACTIONS (14)
  - Migraine [Not Recovered/Not Resolved]
  - Cognitive disorder [Not Recovered/Not Resolved]
  - Hyperacusis [Not Recovered/Not Resolved]
  - Photophobia [Not Recovered/Not Resolved]
  - Exercise tolerance decreased [Not Recovered/Not Resolved]
  - Bradyphrenia [Unknown]
  - Dizziness [Unknown]
  - Product storage error [Unknown]
  - Eye pain [Unknown]
  - Off label use [Unknown]
  - Injection site rash [Unknown]
  - Injection site pain [Unknown]
  - Product quality issue [Unknown]
  - Drug ineffective [Unknown]
